FAERS Safety Report 24351232 (Version 1)
Quarter: 2024Q3

REPORT INFORMATION
  Report Type: Report from Study
  Country: AT (occurrence: AT)
  Receive Date: 20240923
  Receipt Date: 20240923
  Transmission Date: 20241016
  Serious: No
  Sender: ROCHE
  Company Number: AT-ROCHE-2790149

PATIENT
  Age: 38 Year
  Sex: Female

DRUGS (14)
  1. HERCEPTIN [Suspect]
     Active Substance: TRASTUZUMAB
     Indication: HER2 positive breast cancer
     Dosage: MOST RECENT DOSE OF TRASTUZUMAB PRIOR TO THE EVENT WAS RECEIVED ON 12/JAN/2017, 27/02/2017
     Route: 041
     Dates: start: 20161020, end: 20161020
  2. PERJETA [Suspect]
     Active Substance: PERTUZUMAB
     Indication: HER2 positive breast cancer
     Dosage: MOST RECENT DOSE OF PERTUZUMAB PRIOR TO THE EVENT WAS RECEIVED ON 02/FEB/2017.
     Route: 042
     Dates: start: 20161020, end: 20161020
  3. KADCYLA [Suspect]
     Active Substance: ADO-TRASTUZUMAB EMTANSINE
     Indication: HER2 positive breast cancer
     Dosage: MOST RECENT DOSE 16/AUG/2019
     Route: 042
     Dates: start: 20180205
  4. CYTOXAN [Suspect]
     Active Substance: CYCLOPHOSPHAMIDE
     Indication: HER2 positive breast cancer
     Dosage: MOST RECENT DOSE OF CYCLOPHOSPHAMIDE  WAS RECEIVED ON 05/OCT/2016.
     Route: 042
     Dates: start: 20161005
  5. TAXOTERE [Suspect]
     Active Substance: DOCETAXEL
     Indication: HER2 positive breast cancer
     Dosage: MOST RECENT DOSE OF DOCETAXEL PRIOR TO THE EVENT WAS RECEIVED ON 12/JAN/2017.
     Route: 042
     Dates: start: 20161020, end: 20161020
  6. ELLENCE [Suspect]
     Active Substance: EPIRUBICIN HYDROCHLORIDE
     Indication: HER2 positive breast cancer
     Dosage: OTHER..?MOST RECENT DOSE 05/OCT/2016
     Route: 042
     Dates: start: 20161005
  7. ONDANSETRON HYDROCHLORIDE [Concomitant]
     Active Substance: ONDANSETRON HYDROCHLORIDE
     Indication: Nausea
     Dosage: ONGOING = CHECKED
     Dates: start: 20181105
  8. METOCLOPRAMIDE [Concomitant]
     Active Substance: METOCLOPRAMIDE
     Dosage: ONGOING = CHECKED
     Dates: start: 20180205
  9. RAMIPRIL [Concomitant]
     Active Substance: RAMIPRIL
     Dosage: ONGOING = CHECKED
     Dates: start: 20170227
  10. LOPERAMIDE HYDROCHLORIDE [Concomitant]
     Active Substance: LOPERAMIDE HYDROCHLORIDE
     Indication: Diarrhoea
     Dosage: ONGOING = CHECKED
     Dates: start: 20171127
  11. SERTRALINE HYDROCHLORIDE [Concomitant]
     Active Substance: SERTRALINE HYDROCHLORIDE
     Dosage: ONGOING = CHECKED
     Dates: start: 20171016
  12. SUCRALAN [Concomitant]
     Dosage: ONGOING = NOT CHECKED
     Dates: start: 20161215
  13. XGEVA [Concomitant]
     Active Substance: DENOSUMAB
     Dosage: ONGOING = CHECKED
     Dates: start: 20161201
  14. BISOPROLOL FUMARATE [Concomitant]
     Active Substance: BISOPROLOL FUMARATE
     Dosage: ONGOING = CHECKED
     Dates: start: 20170227

REACTIONS (1)
  - Dysgeusia [Recovered/Resolved]

NARRATIVE: CASE EVENT DATE: 20190715
